FAERS Safety Report 19634125 (Version 2)
Quarter: 2021Q4

REPORT INFORMATION
  Report Type: Spontaneous
  Country: AU (occurrence: AU)
  Receive Date: 20210730
  Receipt Date: 20211004
  Transmission Date: 20220303
  Serious: Yes (Hospitalization, Other)
  Sender: FDA-Public Use
  Company Number: AU-NOVOPROD-832257

PATIENT
  Age: 56 Year
  Sex: Male
  Weight: 95 kg

DRUGS (4)
  1. OZEMPIC [Suspect]
     Active Substance: SEMAGLUTIDE
     Indication: Type 2 diabetes mellitus
     Dosage: 0.25 MG, QW
     Route: 058
     Dates: start: 20200715
  2. OZEMPIC [Suspect]
     Active Substance: SEMAGLUTIDE
     Dosage: 1 MG, QW
     Route: 058
     Dates: end: 20210714
  3. CLOZAPINE [Suspect]
     Active Substance: CLOZAPINE
     Indication: Schizoaffective disorder
     Dosage: 400 MG, QD
     Route: 048
     Dates: start: 200909
  4. CLOZAPINE [Suspect]
     Active Substance: CLOZAPINE
     Dosage: DOSE INCREASED
     Route: 065

REACTIONS (3)
  - Drug interaction [Recovered/Resolved]
  - Psychotic disorder [Recovered/Resolved]
  - Mental impairment [Recovered/Resolved]
